FAERS Safety Report 17614059 (Version 1)
Quarter: 2020Q2

REPORT INFORMATION
  Report Type: Spontaneous
  Country: FR (occurrence: FR)
  Receive Date: 20200402
  Receipt Date: 20200402
  Transmission Date: 20200713
  Serious: Yes (Hospitalization)
  Sender: FDA-Public Use
  Company Number: FR-ABBVIE-20K-056-3348160-00

PATIENT
  Age: 73 Year
  Sex: Male
  Weight: 92 kg

DRUGS (1)
  1. IMBRUVICA [Suspect]
     Active Substance: IBRUTINIB
     Indication: WALDENSTROM^S MACROGLOBULINAEMIA
     Route: 048
     Dates: start: 201612, end: 201811

REACTIONS (2)
  - Uveitis [Recovered/Resolved]
  - Macular oedema [Recovered/Resolved]

NARRATIVE: CASE EVENT DATE: 201706
